FAERS Safety Report 21064463 (Version 1)
Quarter: 2022Q3

REPORT INFORMATION
  Report Type: Spontaneous
  Country: US (occurrence: US)
  Receive Date: 20220711
  Receipt Date: 20220711
  Transmission Date: 20221026
  Serious: Yes (Hospitalization, Other)
  Sender: FDA-Public Use
  Company Number: US-TAKEDA-2022TUS044413

PATIENT
  Sex: Female
  Weight: 52 kg

DRUGS (18)
  1. GAMMAGARD LIQUID [Suspect]
     Active Substance: HUMAN IMMUNOGLOBULIN G
     Indication: Demyelinating polyneuropathy
     Dosage: 2 G/KG
     Route: 042
     Dates: start: 20220601
  2. ACETAMINOPHEN [Concomitant]
     Active Substance: ACETAMINOPHEN
  3. AMLODIPINE [Concomitant]
     Active Substance: AMLODIPINE BESYLATE
  4. ABILIFY [Concomitant]
     Active Substance: ARIPIPRAZOLE
  5. DONEPEZIL [Concomitant]
     Active Substance: DONEPEZIL
  6. DORZOLAMIDE [Concomitant]
     Active Substance: DORZOLAMIDE
  7. LOVENOX [Concomitant]
     Active Substance: ENOXAPARIN SODIUM
  8. FLUOXETINE [Concomitant]
     Active Substance: FLUOXETINE HYDROCHLORIDE
  9. LOSARTAN [Concomitant]
     Active Substance: LOSARTAN
  10. POTASSIUM CHLORIDE [Concomitant]
     Active Substance: POTASSIUM CHLORIDE
  11. TIMOLOL [Concomitant]
     Active Substance: TIMOLOL
  12. MELATONIN [Concomitant]
     Active Substance: MELATONIN
  13. HYDRALAZINE [Concomitant]
     Active Substance: HYDRALAZINE HYDROCHLORIDE
  14. SALINE [Concomitant]
     Active Substance: SODIUM CHLORIDE
  15. CALCIUM CARBONATE [Concomitant]
     Active Substance: CALCIUM CARBONATE
  16. CARVEDILOL [Concomitant]
     Active Substance: CARVEDILOL
  17. METHIMAZOLE [Concomitant]
     Active Substance: METHIMAZOLE
  18. ROSUVASTATIN [Concomitant]
     Active Substance: ROSUVASTATIN

REACTIONS (2)
  - Hepatic enzyme increased [Unknown]
  - Delirium [Unknown]
